FAERS Safety Report 11826466 (Version 1)
Quarter: 2015Q4

REPORT INFORMATION
  Report Type: Spontaneous
  Country: US (occurrence: None)
  Receive Date: 20151210
  Receipt Date: 20151210
  Transmission Date: 20160305
  Serious: No
  Sender: FDA-Public Use
  Company Number: None

PATIENT
  Age: 39 Year
  Sex: Female
  Weight: 79.38 kg

DRUGS (1)
  1. ZYRTEC [Suspect]
     Active Substance: CETIRIZINE HYDROCHLORIDE
     Indication: MULTIPLE ALLERGIES
     Dosage: 10 MG PILL
     Route: 048

REACTIONS (8)
  - Hypertension [None]
  - Pruritus [None]
  - Dizziness [None]
  - Confusional state [None]
  - Influenza like illness [None]
  - Heart rate increased [None]
  - Urticaria [None]
  - Vertigo [None]

NARRATIVE: CASE EVENT DATE: 20150910
